FAERS Safety Report 6401549-2 (Version None)
Quarter: 2009Q4

REPORT INFORMATION
  Report Type: 
  Country: None (occurrence: None)
  Receive Date: 20091009
  Receipt Date: 20080704
  Transmission Date: 20100525
  Serious: Yes (Hospitalization)
  Sender: FDA-Public Use
  Company Number: 2009AL006420

PATIENT
  Age: 65 Year
  Sex: Female

DRUGS (11)
  1. DIAZEPAM TAB [Suspect]
     Indication: PSYCHOTIC DISORDER
     Dosage: 10 MG
     Dates: start: 20080420, end: 20080420
  2. NITRAZEPAM [Concomitant]
  3. SEROQUEL [Concomitant]
  4. VAGIFEM [Concomitant]
  5. DAIVOBET [Concomitant]
  6. COZAR COMP [Concomitant]
  7. LAMICTAL [Concomitant]
  8. LEVOTHYROXINE SODIUM [Concomitant]
  9. CHLOROMYCETIN [Concomitant]
  10. THACAPZOL [Concomitant]
  11. PREDNISOLONE [Concomitant]

REACTIONS (3)
  - OXYGEN SATURATION DECREASED [None]
  - SOMNOLENCE [None]
  - TACHYCARDIA [None]
